FAERS Safety Report 19777926 (Version 1)
Quarter: 2021Q3

REPORT INFORMATION
  Report Type: Spontaneous
  Country: US (occurrence: US)
  Receive Date: 20210901
  Receipt Date: 20210901
  Transmission Date: 20211014
  Serious: Yes (Other)
  Sender: FDA-Public Use
  Company Number: None

PATIENT
  Sex: Female

DRUGS (2)
  1. IBUPROFEN. [Suspect]
     Active Substance: IBUPROFEN
  2. NAPROXEN. [Suspect]
     Active Substance: NAPROXEN

REACTIONS (1)
  - Drug ineffective [None]
